FAERS Safety Report 4300645-3 (Version None)
Quarter: 2004Q1

REPORT INFORMATION
  Report Type: 
  Country: None (occurrence: None)
  Receive Date: 20040217
  Receipt Date: 20040202
  Transmission Date: 20041129
  Serious: Yes (Death, Hospitalization, Other)
  Sender: FDA-Public Use
  Company Number: 2003119218

PATIENT
  Age: 9 Year
  Sex: Male

DRUGS (3)
  1. SILDENAFIL (SILDENAFIL) [Suspect]
     Indication: PULMONARY HYPERTENSION
     Dosage: 34.4 MG QID, ORAL
     Route: 048
     Dates: start: 20010201, end: 20031117
  2. EPOPROSTENOL SODIUM (EPOPROSTENOL SODIUM) [Concomitant]
  3. WARFARIN SODIUM [Concomitant]

REACTIONS (4)
  - ATRIOVENTRICULAR BLOCK [None]
  - CARDIAC ARREST [None]
  - CONVULSION [None]
  - VOMITING [None]
